FAERS Safety Report 16719871 (Version 1)
Quarter: 2019Q3

REPORT INFORMATION
  Report Type: Spontaneous
  Country: US (occurrence: US)
  Receive Date: 20190820
  Receipt Date: 20190820
  Transmission Date: 20191005
  Serious: Yes (Hospitalization, Other)
  Sender: FDA-Public Use
  Company Number: US-PFIZER INC-2019354916

PATIENT
  Age: 73 Year
  Sex: Female
  Weight: 53.52 kg

DRUGS (3)
  1. IBRANCE [Suspect]
     Active Substance: PALBOCICLIB
     Indication: METASTASES TO BONE
     Dosage: 125 MG, CYCLIC(ONCE A DAY FOR 21 DAYS THEN ONE WEEK OFF)
     Dates: start: 201812
  2. IBRANCE [Suspect]
     Active Substance: PALBOCICLIB
     Dosage: 100 MG, CYCLIC (ONCE A DAY FOR 21 DAYS THEN ONE WEEK OFF)
     Dates: end: 20190712
  3. METFORMIN [Concomitant]
     Active Substance: METFORMIN HYDROCHLORIDE

REACTIONS (7)
  - Urinary tract infection [Recovered/Resolved with Sequelae]
  - Haemoglobin decreased [Recovering/Resolving]
  - Kidney infection [Recovered/Resolved with Sequelae]
  - Pyrexia [Recovered/Resolved]
  - Infection [Unknown]
  - Chills [Unknown]
  - Asthenia [Unknown]

NARRATIVE: CASE EVENT DATE: 20190710
